FAERS Safety Report 9236919 (Version 1)
Quarter: 2013Q2

REPORT INFORMATION
  Report Type: Spontaneous
  Country: US (occurrence: US)
  Receive Date: 20130417
  Receipt Date: 20130417
  Transmission Date: 20140414
  Serious: Yes (Other)
  Sender: FDA-Public Use
  Company Number: US-PFIZER INC-2013115708

PATIENT
  Age: 61 Year
  Sex: Male

DRUGS (8)
  1. REVATIO [Suspect]
     Dosage: UNK
  2. LETAIRIS [Suspect]
     Indication: PULMONARY HYPERTENSION
     Dosage: 10 MG, QD
     Route: 048
     Dates: start: 201302
  3. ATORVASTATIN [Concomitant]
     Dosage: UNK
  4. AMITRIPTYLINE [Concomitant]
     Dosage: UNK
  5. LEVOTHYROXINE [Concomitant]
     Dosage: UNK
  6. PROBENECID [Concomitant]
     Dosage: UNK
  7. FLOLAN [Concomitant]
     Dosage: UNK
  8. WARFARIN [Concomitant]
     Dosage: UNK

REACTIONS (2)
  - Thrombocytopenia [Unknown]
  - Epistaxis [Unknown]
